FAERS Safety Report 19081815 (Version 1)
Quarter: 2021Q2

REPORT INFORMATION
  Report Type: Spontaneous
  Country: FR (occurrence: FR)
  Receive Date: 20210401
  Receipt Date: 20210401
  Transmission Date: 20210717
  Serious: Yes (Hospitalization)
  Sender: FDA-Public Use
  Company Number: FR-ROCHE-2801782

PATIENT
  Age: 40 Year
  Sex: Female

DRUGS (2)
  1. EPITOMAX [Suspect]
     Active Substance: TOPIRAMATE
     Indication: HEADACHE
     Dosage: 25 MG, Q24H (PENDANT 15 JOURS PUIS 50 MG/J)
     Route: 048
     Dates: start: 20210202, end: 20210305
  2. XOLAIR [Suspect]
     Active Substance: OMALIZUMAB
     Indication: EOSINOPHILIC GRANULOMATOSIS WITH POLYANGIITIS
     Dosage: 300 MG, 4W
     Route: 058
     Dates: start: 20200213

REACTIONS (1)
  - Optic neuritis [Not Recovered/Not Resolved]

NARRATIVE: CASE EVENT DATE: 20210302
